FAERS Safety Report 23416458 (Version 1)
Quarter: 2024Q1

REPORT INFORMATION
  Report Type: Spontaneous
  Country: US (occurrence: None)
  Receive Date: 20240117
  Receipt Date: 20240117
  Transmission Date: 20240409
  Serious: Yes (unspecified)
  Sender: FDA-Public Use
  Company Number: None

PATIENT
  Age: 30 Year
  Sex: Female
  Weight: 76.05 kg

DRUGS (2)
  1. POLYMYXIN B\TRIMETHOPRIM SULFATE [Suspect]
     Active Substance: POLYMYXIN B\TRIMETHOPRIM SULFATE
     Dosage: OTHER QUANTITY : 1 DROP(S);?
     Route: 047
  2. PRENATALS [Concomitant]

REACTIONS (4)
  - Periorbital disorder [None]
  - Instillation site exfoliation [None]
  - Chemical burn [None]
  - Exposure during pregnancy [None]

NARRATIVE: CASE EVENT DATE: 20240114
